FAERS Safety Report 6151253-3 (Version None)
Quarter: 2009Q2

REPORT INFORMATION
  Report Type: 
  Country: None (occurrence: None)
  Receive Date: 20090410
  Receipt Date: 20090330
  Transmission Date: 20091009
  Serious: Yes (Other)
  Sender: FDA-Public Use
  Company Number: AT-PFIZER INC-2009192379

PATIENT

DRUGS (2)
  1. ZYVOXID [Suspect]
     Dates: start: 20090101, end: 20090301
  2. PROGRAF [Concomitant]

REACTIONS (1)
  - AGRANULOCYTOSIS [None]
